FAERS Safety Report 4358111-5 (Version None)
Quarter: 2004Q2

REPORT INFORMATION
  Report Type: 
  Country: None (occurrence: None)
  Receive Date: 20040510
  Receipt Date: 20040422
  Transmission Date: 20050107
  Serious: Yes (Hospitalization)
  Sender: FDA-Public Use
  Company Number: 196626

PATIENT
  Age: 50 Year
  Sex: Male
  Weight: 70.3075 kg

DRUGS (3)
  1. AVONEX [Suspect]
     Indication: MULTIPLE SCLEROSIS
     Dosage: 30 MCG QW IM
     Route: 030
     Dates: start: 19980101
  2. AVONEX [Suspect]
     Indication: MULTIPLE SCLEROSIS
     Dosage: 30 MCG QW IM
     Route: 030
  3. PROTONIX [Concomitant]

REACTIONS (7)
  - BLOOD POTASSIUM DECREASED [None]
  - CONDITION AGGRAVATED [None]
  - DECUBITUS ULCER [None]
  - MULTIPLE SCLEROSIS [None]
  - PNEUMONIA ASPIRATION [None]
  - URINARY INCONTINENCE [None]
  - URINARY TRACT INFECTION [None]
